FAERS Safety Report 6154079-X (Version None)
Quarter: 2009Q2

REPORT INFORMATION
  Report Type: 
  Country: None (occurrence: None)
  Receive Date: 20090414
  Receipt Date: 20090406
  Transmission Date: 20091009
  Serious: Yes (Death)
  Sender: FDA-Public Use
  Company Number: KR-ROCHE-626268

PATIENT
  Age: 51 Year
  Sex: Female

DRUGS (1)
  1. ISOTRETINOIN [Suspect]
     Dosage: FOR 5 WEEKS PRIOR TO I-131 THERAPY
     Route: 065

REACTIONS (1)
  - DEATH [None]
